FAERS Safety Report 21618385 (Version 1)
Quarter: 2022Q4

REPORT INFORMATION
  Report Type: Spontaneous
  Country: ZA (occurrence: ZA)
  Receive Date: 20221119
  Receipt Date: 20221119
  Transmission Date: 20230112
  Serious: Yes (Hospitalization)
  Sender: FDA-Public Use
  Company Number: ZA-002147023-NVSC2022ZA260162

PATIENT
  Sex: Male

DRUGS (1)
  1. VALSARTAN [Suspect]
     Active Substance: VALSARTAN
     Indication: Product used for unknown indication
     Dosage: UNK
     Route: 065

REACTIONS (1)
  - Cerebrovascular accident [Unknown]
